FAERS Safety Report 15497475 (Version 1)
Quarter: 2018Q4

REPORT INFORMATION
  Report Type: Spontaneous
  Country: FR (occurrence: FR)
  Receive Date: 20181015
  Receipt Date: 20181015
  Transmission Date: 20190205
  Serious: Yes (Hospitalization)
  Sender: FDA-Public Use
  Company Number: FR-BAUSCH-BL-2018-027396

PATIENT
  Age: 77 Year
  Sex: Female
  Weight: 73 kg

DRUGS (6)
  1. FLOXYFRAL [Suspect]
     Active Substance: FLUVOXAMINE
     Indication: BIPOLAR DISORDER
     Route: 048
  2. SELEXID (PIVMECILLINAM HYDROCHLORIDE) [Suspect]
     Active Substance: PIVMECILLINAM HYDROCHLORIDE
     Indication: URINARY TRACT INFECTION
     Route: 048
     Dates: start: 201807, end: 20180728
  3. BISOPROLOL FUMARATE. [Suspect]
     Active Substance: BISOPROLOL FUMARATE
     Indication: HYPERTENSION
     Route: 048
  4. SIMVASTATINE [Suspect]
     Active Substance: SIMVASTATIN
     Indication: DYSLIPIDAEMIA
     Route: 048
  5. LORAZEPAM. [Suspect]
     Active Substance: LORAZEPAM
     Indication: BIPOLAR DISORDER
     Route: 048
  6. AMLODIPINE [Suspect]
     Active Substance: AMLODIPINE BESYLATE
     Indication: HYPERTENSION
     Route: 048
     Dates: start: 201807

REACTIONS (2)
  - Pancreatitis acute [Recovered/Resolved]
  - Abdominal pain [Recovered/Resolved]

NARRATIVE: CASE EVENT DATE: 20180810
